FAERS Safety Report 11423776 (Version 1)
Quarter: 2015Q3

REPORT INFORMATION
  Report Type: Spontaneous
  Country: US (occurrence: US)
  Receive Date: 20150827
  Receipt Date: 20150827
  Transmission Date: 20151125
  Serious: No
  Sender: FDA-Public Use
  Company Number: US-JNJFOC-20150119355

PATIENT
  Age: 3 Year
  Sex: Male
  Weight: 16.78 kg

DRUGS (2)
  1. MOTRIN INFANTS [Suspect]
     Active Substance: IBUPROFEN
     Route: 048
  2. MOTRIN INFANTS [Suspect]
     Active Substance: IBUPROFEN
     Indication: PYREXIA
     Dosage: AS NEEDED
     Route: 048

REACTIONS (2)
  - Product use issue [Unknown]
  - Body temperature decreased [Unknown]
